FAERS Safety Report 25220378 (Version 3)
Quarter: 2025Q2

REPORT INFORMATION
  Report Type: Spontaneous
  Country: US (occurrence: US)
  Receive Date: 20250421
  Receipt Date: 20250609
  Transmission Date: 20250716
  Serious: No
  Sender: PFIZER
  Company Number: US-PFIZER INC-202500076366

PATIENT
  Age: 17 Year
  Sex: Male

DRUGS (1)
  1. GENOTROPIN [Suspect]
     Active Substance: SOMATROPIN
     Dosage: 1.0 MG, DAILY

REACTIONS (5)
  - Device defective [Unknown]
  - Device physical property issue [Unknown]
  - Device information output issue [Unknown]
  - Drug dose omission by device [Unknown]
  - Device breakage [Unknown]

NARRATIVE: CASE EVENT DATE: 20250407
